FAERS Safety Report 24801589 (Version 2)
Quarter: 2025Q1

REPORT INFORMATION
  Report Type: Spontaneous
  Country: US (occurrence: US)
  Receive Date: 20250102
  Receipt Date: 20250127
  Transmission Date: 20250409
  Serious: No
  Sender: PFIZER
  Company Number: US-PFIZER INC-202400333424

PATIENT
  Age: 73 Year
  Sex: Male

DRUGS (1)
  1. XELJANZ [Suspect]
     Active Substance: TOFACITINIB CITRATE

REACTIONS (3)
  - Arthritis [Not Recovered/Not Resolved]
  - Dysgraphia [Not Recovered/Not Resolved]
  - Pain [Unknown]
